FAERS Safety Report 23698911 (Version 1)
Quarter: 2024Q2

REPORT INFORMATION
  Report Type: Spontaneous
  Country: US (occurrence: US)
  Receive Date: 20240402
  Receipt Date: 20240402
  Transmission Date: 20240716
  Serious: Yes (Other)
  Sender: FDA-Public Use
  Company Number: US-MYLANLABS-2024M1028536

PATIENT
  Age: 89 Year
  Sex: Male
  Weight: 88.9 kg

DRUGS (11)
  1. GABAPENTIN [Suspect]
     Active Substance: GABAPENTIN
     Indication: Pain
     Dosage: 100 MILLIGRAM, QD (ONCE DAILY)
     Route: 065
  2. GABAPENTIN [Suspect]
     Active Substance: GABAPENTIN
     Indication: Swelling
  3. ELIQUIS [Suspect]
     Active Substance: APIXABAN
     Indication: Deep vein thrombosis
     Dosage: 5 MILLIGRAM, BID
     Route: 048
     Dates: start: 2024
  4. ASPIRIN [Concomitant]
     Active Substance: ASPIRIN
     Indication: Product used for unknown indication
     Dosage: 81 MILLIGRAM, QD
     Route: 065
  5. AMLODIPINE [Concomitant]
     Active Substance: AMLODIPINE BESYLATE
     Dosage: UNK
     Route: 065
  6. COLACE [Concomitant]
     Active Substance: DOCUSATE SODIUM
     Dosage: UNK
     Route: 065
  7. EZETIMIBE [Concomitant]
     Active Substance: EZETIMIBE
     Dosage: UNK
     Route: 065
  8. METOPROLOL [Concomitant]
     Active Substance: METOPROLOL
     Dosage: UNK
     Route: 065
  9. PANTOPRAZOLE [Concomitant]
     Active Substance: PANTOPRAZOLE
     Dosage: UNK
     Route: 065
  10. MIRALAX [Concomitant]
     Active Substance: POLYETHYLENE GLYCOL 3350
     Dosage: UNK
     Route: 065
  11. MAGNESIUM [Concomitant]
     Active Substance: MAGNESIUM
     Dosage: UNK
     Route: 065

REACTIONS (10)
  - Neuropathy peripheral [Unknown]
  - Hallucination [Unknown]
  - Post procedural infection [Unknown]
  - Memory impairment [Unknown]
  - Wound haemorrhage [Recovered/Resolved]
  - Onychoclasis [Unknown]
  - Pain in extremity [Not Recovered/Not Resolved]
  - Peripheral swelling [Not Recovered/Not Resolved]
  - Pyrexia [Unknown]
  - Dizziness [Unknown]
